FAERS Safety Report 16376558 (Version 2)
Quarter: 2022Q3

REPORT INFORMATION
  Report Type: Other
  Country: US (occurrence: None)
  Receive Date: 20190531
  Receipt Date: 20220908
  Transmission Date: 20221027
  Serious: Yes (Other)
  Sender: FDA-Public Use
  Company Number: US-ROCHE-2311694

PATIENT
  Age: 57 Year
  Sex: Female
  Weight: 90.346 kg

DRUGS (8)
  1. OCREVUS [Suspect]
     Active Substance: OCRELIZUMAB
     Indication: Relapsing multiple sclerosis
     Route: 042
     Dates: start: 20180523
  2. OCREVUS [Suspect]
     Active Substance: OCRELIZUMAB
     Indication: Primary progressive multiple sclerosis
     Dosage: LAST DATE OF TREATMENT: 04/DEC/2020, DATE OF LATEST INFUSION: 06/DEC/2021, ANTICIPATED DATE OF TREAT
     Route: 042
     Dates: start: 2018
  3. ESTRADIOL [Concomitant]
     Active Substance: ESTRADIOL
  4. ZYRTEC [Concomitant]
     Active Substance: CETIRIZINE HYDROCHLORIDE
  5. TOPIRAMATE [Concomitant]
     Active Substance: TOPIRAMATE
  6. AMLODIPINE [Concomitant]
     Active Substance: AMLODIPINE BESYLATE
  7. BUDESONIDE [Concomitant]
     Active Substance: BUDESONIDE
  8. PANTOPRAZOLE SODIUM [Concomitant]
     Active Substance: PANTOPRAZOLE SODIUM

REACTIONS (11)
  - Colitis ulcerative [Not Recovered/Not Resolved]
  - Blindness [Unknown]
  - Cataract [Recovered/Resolved]
  - Colitis microscopic [Not Recovered/Not Resolved]
  - Visual impairment [Unknown]
  - Rash [Not Recovered/Not Resolved]
  - Gastritis [Unknown]
  - Diarrhoea [Recovered/Resolved]
  - Weight decreased [Unknown]
  - Immunoglobulins decreased [Not Recovered/Not Resolved]
  - Hiatus hernia [Unknown]

NARRATIVE: CASE EVENT DATE: 20180601
